FAERS Safety Report 12739174 (Version 1)
Quarter: 2016Q3

REPORT INFORMATION
  Report Type: Spontaneous
  Country: US (occurrence: US)
  Receive Date: 20160913
  Receipt Date: 20160913
  Transmission Date: 20161109
  Serious: No
  Sender: FDA-Public Use
  Company Number: US-RB-079449-15

PATIENT
  Sex: Female

DRUGS (1)
  1. MUCINEX MAXIMUM STRENGTH [Suspect]
     Active Substance: GUAIFENESIN
     Indication: VIRAL INFECTION
     Dosage: 1200MG. ,FREQUENCY UNK
     Route: 065

REACTIONS (3)
  - Product use issue [Unknown]
  - No adverse event [Unknown]
  - Incorrect drug administration duration [Unknown]
